FAERS Safety Report 24191048 (Version 2)
Quarter: 2024Q3

REPORT INFORMATION
  Report Type: Spontaneous
  Country: US (occurrence: US)
  Receive Date: 20240808
  Receipt Date: 20240816
  Transmission Date: 20241017
  Serious: Yes (Other)
  Sender: ABBVIE
  Company Number: US-ABBVIE-5870385

PATIENT
  Sex: Female

DRUGS (5)
  1. RESTASIS [Suspect]
     Active Substance: CYCLOSPORINE
     Indication: Dry eye
     Route: 047
  2. REFRESH OPTIVE MEGA-3 [Suspect]
     Active Substance: CARBOXYMETHYLCELLULOSE SODIUM\GLYCERIN\POLYSORBATE 80
     Indication: Dry eye
     Route: 047
     Dates: start: 2019
  3. ATORVASTATIN [Concomitant]
     Active Substance: ATORVASTATIN
     Indication: Blood cholesterol
  4. ALEVE [Concomitant]
     Active Substance: NAPROXEN SODIUM
     Indication: Back pain
  5. IRBESARTAN [Concomitant]
     Active Substance: IRBESARTAN
     Indication: Blood pressure measurement

REACTIONS (19)
  - Macular degeneration [Unknown]
  - Contusion [Recovered/Resolved]
  - Multiple use of single-use product [Not Recovered/Not Resolved]
  - Fall [Recovered/Resolved]
  - Vision blurred [Not Recovered/Not Resolved]
  - Burning sensation [Not Recovered/Not Resolved]
  - Dry eye [Unknown]
  - Eye pruritus [Recovering/Resolving]
  - Thermal burn [Unknown]
  - Anxiety [Unknown]
  - Visual impairment [Unknown]
  - Face injury [Recovered/Resolved]
  - Asthenopia [Not Recovered/Not Resolved]
  - Seasonal allergy [Unknown]
  - Allergic respiratory symptom [Unknown]
  - Eye pain [Not Recovered/Not Resolved]
  - Drug intolerance [Unknown]
  - Drug ineffective [Unknown]
  - Central vision loss [Not Recovered/Not Resolved]

NARRATIVE: CASE EVENT DATE: 20190101
